FAERS Safety Report 6657774-9 (Version None)
Quarter: 2010Q1

REPORT INFORMATION
  Report Type: 
  Country: None (occurrence: None)
  Receive Date: 20100330
  Receipt Date: 20090819
  Transmission Date: 20100710
  Serious: No
  Sender: FDA-Public Use
  Company Number: US-TYCO HEALTHCARE/MALLINCKRODT-T200901579

PATIENT
  Sex: Female

DRUGS (1)
  1. METHADOSE [Suspect]

REACTIONS (5)
  - ALOPECIA [None]
  - AMENORRHOEA [None]
  - HYPOTHALAMO-PITUITARY DISORDER [None]
  - THYROID FUNCTION TEST ABNORMAL [None]
  - WEIGHT INCREASED [None]
